FAERS Safety Report 19672843 (Version 1)
Quarter: 2021Q3

REPORT INFORMATION
  Report Type: Report from Study
  Country: CA (occurrence: CA)
  Receive Date: 20210809
  Receipt Date: 20210809
  Transmission Date: 20211014
  Serious: Yes (Other)
  Sender: FDA-Public Use
  Company Number: NVSC2020CA353716

PATIENT
  Sex: Female

DRUGS (8)
  1. BENADRYL [Concomitant]
     Active Substance: DIPHENHYDRAMINE HYDROCHLORIDE
     Indication: PRODUCT USED FOR UNKNOWN INDICATION
     Dosage: UNK
     Route: 065
     Dates: start: 2017
  2. XOLAIR [Suspect]
     Active Substance: OMALIZUMAB
     Indication: CHRONIC SPONTANEOUS URTICARIA
     Dosage: 300 MG, EVERY 4 WEEKS
     Route: 058
     Dates: start: 20200514
  3. XOLAIR [Suspect]
     Active Substance: OMALIZUMAB
     Dosage: 300 MG, EVERY 4 WEEKS
     Route: 065
     Dates: start: 202005
  4. BILASTINE [Suspect]
     Active Substance: BILASTINE
     Dosage: 40 MG, QD
     Route: 065
  5. EPIPEN [Suspect]
     Active Substance: EPINEPHRINE
     Indication: CHRONIC SPONTANEOUS URTICARIA
     Dosage: UNK, PRN
     Route: 065
  6. BILASTINE [Suspect]
     Active Substance: BILASTINE
     Indication: CHRONIC SPONTANEOUS URTICARIA
     Dosage: 20 MG, BID
     Route: 048
     Dates: start: 2018
  7. CETRIZIN [CETIRIZINE HYDROCHLORIDE] [Suspect]
     Active Substance: CETIRIZINE HYDROCHLORIDE
     Indication: CHRONIC SPONTANEOUS URTICARIA
     Dosage: 20 MG, QD
     Route: 065
  8. MONTELUKAST [Suspect]
     Active Substance: MONTELUKAST SODIUM
     Indication: CHRONIC SPONTANEOUS URTICARIA
     Dosage: 10 MG, QD
     Route: 065

REACTIONS (5)
  - Pruritus [Unknown]
  - Product dose omission issue [Unknown]
  - Drug ineffective [Unknown]
  - Angioedema [Unknown]
  - Urticaria chronic [Unknown]
